FAERS Safety Report 8814378 (Version 1)
Quarter: 2012Q4

REPORT INFORMATION
  Report Type: 
  Country: US (occurrence: US)
  Receive Date: 20120928
  Receipt Date: 20120928
  Transmission Date: 20130627
  Serious: Yes (Other)
  Sender: FDA-Public Use
  Company Number: PHEH2012US018610

PATIENT
  Sex: Female

DRUGS (1)
  1. SANDOSTATIN LAR DEPOT [Suspect]
     Route: 030

REACTIONS (4)
  - Cardiac disorder [Unknown]
  - Neoplasm [Unknown]
  - Lymphadenopathy [Unknown]
  - Full blood count increased [Unknown]
